FAERS Safety Report 4643977-1 (Version None)
Quarter: 2005Q1

REPORT INFORMATION
  Report Type: 
  Country: None (occurrence: None)
  Receive Date: 20050331
  Receipt Date: 20050214
  Transmission Date: 20050727
  Serious: No
  Sender: FDA-Public Use
  Company Number: 05P-163-0290585-00

PATIENT
  Age: 68 Year
  Sex: Female
  Weight: 100 kg

DRUGS (6)
  1. HUMIRA [Suspect]
     Indication: RHEUMATOID ARTHRITIS
     Dosage: 40 MG, 1 IN 2 WK, SUBCUTANEOUS
     Route: 058
     Dates: start: 20041001
  2. INSULIN [Concomitant]
  3. GLUCOPHAGE [Concomitant]
  4. ASPIRIN [Concomitant]
  5. MULTI-VITAMINS [Concomitant]
  6. ZETIA [Concomitant]

REACTIONS (2)
  - CONDITION AGGRAVATED [None]
  - RHEUMATOID ARTHRITIS [None]
